FAERS Safety Report 5402765-9 (Version None)
Quarter: 2007Q3

REPORT INFORMATION
  Report Type: 
  Country: None (occurrence: None)
  Receive Date: 20070727
  Receipt Date: 20070626
  Transmission Date: 20080115
  Serious: Yes (Death)
  Sender: FDA-Public Use
  Company Number: 6035446

PATIENT
  Age: 36 Year
  Sex: Female

DRUGS (7)
  1. FLUOXETINE [Suspect]
     Indication: DRUG USE FOR UNKNOWN INDICATION
     Dosage: 40 MG (40 MG,1 IN 1 D)
  2. CLOZARIL [Suspect]
     Indication: DRUG USE FOR UNKNOWN INDICATION
     Dosage: 350 MG (350 MG, 1 IN 1 D)
  3. PAROXETINE [Suspect]
     Indication: DRUG USE FOR UNKNOWN INDICATION
     Dosage: 1 IN 1 D
  4. LEVOTHYROXINE (LEVOTHROXINE) [Concomitant]
  5. LITHIUM CARBONATE [Concomitant]
  6. OMEPRAZOLE [Concomitant]
  7. ZOPICLONE (ZOPICLONE) [Concomitant]

REACTIONS (1)
  - SUDDEN DEATH [None]
